FAERS Safety Report 4590230-0 (Version None)
Quarter: 2005Q1

REPORT INFORMATION
  Report Type: 
  Country: None (occurrence: None)
  Receive Date: 20050217
  Receipt Date: 20050203
  Transmission Date: 20050727
  Serious: Yes (Hospitalization)
  Sender: FDA-Public Use
  Company Number: 2005BI002511

PATIENT
  Age: 40 Year
  Sex: Female
  Weight: 117.9352 kg

DRUGS (5)
  1. AVONEX [Suspect]
     Indication: MULTIPLE SCLEROSIS
     Dosage: 30 UG; QW; IM
     Route: 030
     Dates: start: 19980101, end: 20040101
  2. AVONEX [Suspect]
     Indication: MULTIPLE SCLEROSIS
     Dosage: 30 UG; QW; IM
     Route: 030
     Dates: start: 20040101
  3. NEURONTIN [Concomitant]
  4. PAXIL [Concomitant]
  5. LIPITOR [Concomitant]

REACTIONS (8)
  - ASTHENIA [None]
  - COLITIS [None]
  - FALL [None]
  - INFLUENZA LIKE ILLNESS [None]
  - MEMORY IMPAIRMENT [None]
  - SPEECH DISORDER [None]
  - TOOTHACHE [None]
  - VISUAL ACUITY REDUCED [None]
